FAERS Safety Report 7055869-1 (Version None)
Quarter: 2010Q4

REPORT INFORMATION
  Report Type: 
  Country: None (occurrence: None)
  Receive Date: 20101021
  Receipt Date: 20101012
  Transmission Date: 20110411
  Serious: Yes (Death)
  Sender: FDA-Public Use
  Company Number: GXKR2010FR11544

PATIENT

DRUGS (1)
  1. FLUOXETINE [Suspect]
     Dosage: MATERNAL DOSE: 40 MG/DAY
     Route: 064

REACTIONS (7)
  - ABORTION INDUCED [None]
  - CARDIOMYOPATHY [None]
  - DRUG EXPOSURE DURING PREGNANCY [None]
  - FOETAL GROWTH RESTRICTION [None]
  - LEFT VENTRICULAR HYPERTROPHY [None]
  - TRICUSPID VALVE DISEASE [None]
  - VENTRICULAR HYPOPLASIA [None]
